FAERS Safety Report 14582433 (Version 1)
Quarter: 2018Q1

REPORT INFORMATION
  Report Type: Spontaneous
  Country: LB (occurrence: LB)
  Receive Date: 20180228
  Receipt Date: 20180228
  Transmission Date: 20180509
  Serious: Yes (Other)
  Sender: FDA-Public Use
  Company Number: LB-ABBVIE-18S-093-2266720-00

PATIENT

DRUGS (1)
  1. SURVANTA [Suspect]
     Active Substance: BERACTANT
     Indication: ACUTE RESPIRATORY DISTRESS SYNDROME
     Dosage: 2 DOSES (INTERVAL OF 6 HOURS BETWEEN DOSES) IF THERE IS A NEED
     Route: 007

REACTIONS (4)
  - Hypoxia [Recovered/Resolved]
  - Neonatal respiratory distress syndrome [Recovered/Resolved]
  - Thrombosis [Recovered/Resolved]
  - Endotracheal intubation complication [Recovered/Resolved]
